FAERS Safety Report 6049725-5 (Version None)
Quarter: 2009Q1

REPORT INFORMATION
  Report Type: 
  Country: None (occurrence: None)
  Receive Date: 20090121
  Receipt Date: 20071220
  Transmission Date: 20090719
  Serious: No
  Sender: FDA-Public Use
  Company Number: HQWYE327826SEP07

PATIENT
  Age: 48 Year
  Sex: Female

DRUGS (6)
  1. PREMPHASE 14/14 [Suspect]
     Indication: HORMONE REPLACEMENT THERAPY
     Dosage: 1 TABLET 1X PER 1 DAY, ORAL
     Route: 048
     Dates: start: 20070901
  2. ACEBUTOLOL [Concomitant]
  3. DEPAKOTE [Concomitant]
  4. KLONOPIN [Concomitant]
  5. LITHIUM CARBONATE [Concomitant]
  6. AMBIEN [Concomitant]

REACTIONS (4)
  - DEPRESSION [None]
  - FATIGUE [None]
  - FEELING OF BODY TEMPERATURE CHANGE [None]
  - NERVOUSNESS [None]
